FAERS Safety Report 23404288 (Version 1)
Quarter: 2024Q1

REPORT INFORMATION
  Report Type: Spontaneous
  Country: JP (occurrence: JP)
  Receive Date: 20240116
  Receipt Date: 20240116
  Transmission Date: 20240410
  Serious: Yes (Hospitalization, Other)
  Sender: FDA-Public Use
  Company Number: JP-GILEAD-2024-0657966

PATIENT
  Age: 8 Decade
  Sex: Female
  Weight: 40 kg

DRUGS (1)
  1. HARVONI [Suspect]
     Active Substance: LEDIPASVIR\SOFOSBUVIR
     Indication: Hepatitis C
     Dosage: UNK
     Route: 065

REACTIONS (2)
  - Hepatocellular carcinoma [Recovering/Resolving]
  - Hepatic steatosis [Unknown]
